FAERS Safety Report 4832782-9 (Version None)
Quarter: 2005Q4

REPORT INFORMATION
  Report Type: 
  Country: None (occurrence: None)
  Receive Date: 20051117
  Receipt Date: 20051117
  Transmission Date: 20060501
  Serious: Yes (Hospitalization)
  Sender: FDA-Public Use
  Company Number: None

PATIENT
  Age: 83 Year
  Sex: Male

DRUGS (2)
  1. BACTRIM [Suspect]
     Indication: POSTOPERATIVE WOUND INFECTION
     Dosage: BID PO
     Route: 048
     Dates: start: 20050719, end: 20050726
  2. RIFAMPIN [Suspect]
     Indication: POSTOPERATIVE WOUND INFECTION
     Dosage: 300MG  BID PO
     Route: 048
     Dates: start: 20050719, end: 20050727

REACTIONS (7)
  - ANOREXIA [None]
  - ASTHENIA [None]
  - CHILLS [None]
  - DYSPNOEA [None]
  - FATIGUE [None]
  - HYPONATRAEMIA [None]
  - PANCYTOPENIA [None]
